FAERS Safety Report 21065172 (Version 1)
Quarter: 2022Q3

REPORT INFORMATION
  Report Type: Spontaneous
  Country: FR (occurrence: FR)
  Receive Date: 20220711
  Receipt Date: 20220711
  Transmission Date: 20221026
  Serious: Yes (Other)
  Sender: FDA-Public Use
  Company Number: None

PATIENT
  Age: 69 Year
  Sex: Female
  Weight: 42 kg

DRUGS (12)
  1. ONDANSETRON [Suspect]
     Active Substance: ONDANSETRON
     Indication: Small intestine neuroendocrine tumour
     Dates: start: 20211125, end: 20211125
  2. ONDANSETRON [Suspect]
     Active Substance: ONDANSETRON
     Dates: start: 20210928, end: 20210928
  3. ONDANSETRON [Suspect]
     Active Substance: ONDANSETRON
     Dates: start: 20220126, end: 20220126
  4. LUTATHERA [Suspect]
     Active Substance: LUTETIUM OXODOTREOTIDE LU-177
     Indication: Small intestine neuroendocrine tumour
     Dosage: 370 MBQ/ML, SOLUTION POUR PERFUSION
     Dates: start: 20220126, end: 20220126
  5. LUTATHERA [Suspect]
     Active Substance: LUTETIUM OXODOTREOTIDE LU-177
     Dosage: 370 MBQ/ML, SOLUTION POUR PERFUSION
     Dates: start: 20210928, end: 20210928
  6. LUTATHERA [Suspect]
     Active Substance: LUTETIUM OXODOTREOTIDE LU-177
     Dosage: 370 MBQ/ML, SOLUTION POUR PERFUSION
     Dates: start: 20211125, end: 20211125
  7. ARGININE\LYSINE [Suspect]
     Active Substance: ARGININE\LYSINE
     Indication: Small intestine neuroendocrine tumour
     Dosage: 25 G/25 G, SOLUTION POUR PERFUSION
     Dates: start: 20210928, end: 20210928
  8. ARGININE\LYSINE [Suspect]
     Active Substance: ARGININE\LYSINE
     Dosage: 25 G/25 G, SOLUTION POUR PERFUSION
     Dates: start: 20220126, end: 20220126
  9. ARGININE\LYSINE [Suspect]
     Active Substance: ARGININE\LYSINE
     Dosage: 25 G/25 G, SOLUTION POUR PERFUSION
     Dates: start: 20211125, end: 20211125
  10. FIASP [Concomitant]
     Active Substance: INSULIN ASPART
     Indication: Product used for unknown indication
  11. CREON [Concomitant]
     Active Substance: PANCRELIPASE AMYLASE\PANCRELIPASE LIPASE\PANCRELIPASE PROTEASE
     Indication: Product used for unknown indication
  12. LANREOTIDE ACETATE [Concomitant]
     Active Substance: LANREOTIDE ACETATE
     Indication: Product used for unknown indication

REACTIONS (1)
  - Thrombocytopenia [Not Recovered/Not Resolved]

NARRATIVE: CASE EVENT DATE: 20220126
